FAERS Safety Report 6989139-4 (Version None)
Quarter: 2010Q3

REPORT INFORMATION
  Report Type: 
  Country: None (occurrence: None)
  Receive Date: 20100916
  Receipt Date: 20090814
  Transmission Date: 20110219
  Serious: Yes (Hospitalization)
  Sender: FDA-Public Use
  Company Number: DE-PFIZER INC-2009255043

PATIENT
  Sex: Female

DRUGS (1)
  1. LYRICA [Suspect]
     Indication: ANXIETY
     Dosage: 100 MG, 3X/DAY
     Route: 048
     Dates: start: 20070101, end: 20090101

REACTIONS (2)
  - NEPHRECTOMY [None]
  - URETERAL NEOPLASM [None]
